FAERS Safety Report 8329786-0 (Version None)
Quarter: 2012Q2

REPORT INFORMATION
  Report Type: 
  Country: None (occurrence: None)
  Receive Date: 20120502
  Receipt Date: 20120425
  Transmission Date: 20120825
  Serious: Yes (Hospitalization)
  Sender: FDA-Public Use
  Company Number: GB-AMGEN-GBRSP2012026283

PATIENT

DRUGS (1)
  1. NEUPOGEN [Suspect]
     Indication: ISCHAEMIC STROKE
     Dosage: 10 MUG/KG, UNK
     Route: 058

REACTIONS (3)
  - LEUKOPENIA [None]
  - PULMONARY EMBOLISM [None]
  - THROMBOCYTOPENIA [None]
